FAERS Safety Report 10025210 (Version 1)
Quarter: 2014Q1

REPORT INFORMATION
  Report Type: Spontaneous
  Country: US (occurrence: US)
  Receive Date: 20140320
  Receipt Date: 20140320
  Transmission Date: 20141002
  Serious: Yes (Other)
  Sender: FDA-Public Use
  Company Number: US-TEVA-469685USA

PATIENT
  Age: 50 Year
  Sex: Male

DRUGS (2)
  1. FENTORA [Suspect]
     Indication: PRODUCT USED FOR UNKNOWN INDICATION
     Route: 002
  2. FENTORA [Suspect]
     Route: 002

REACTIONS (2)
  - Malaise [Not Recovered/Not Resolved]
  - Pain [Unknown]
